FAERS Safety Report 16061109 (Version 1)
Quarter: 2019Q1

REPORT INFORMATION
  Report Type: Spontaneous
  Country: US (occurrence: US)
  Receive Date: 20190312
  Receipt Date: 20190312
  Transmission Date: 20190418
  Serious: No
  Sender: FDA-Public Use
  Company Number: US-ROCHE-2137827

PATIENT
  Sex: Female
  Weight: 77.18 kg

DRUGS (3)
  1. AVASTIN [Suspect]
     Active Substance: BEVACIZUMAB
     Indication: NEOVASCULAR AGE-RELATED MACULAR DEGENERATION
     Dosage: EVERY 5-8 WEEKS LEFT EYE
     Route: 050
     Dates: start: 201608
  2. LUCENTIS [Suspect]
     Active Substance: RANIBIZUMAB
     Indication: NEOVASCULAR AGE-RELATED MACULAR DEGENERATION
     Dosage: LEFT EYE
     Route: 050
     Dates: start: 20151222, end: 20160609
  3. AVASTIN [Suspect]
     Active Substance: BEVACIZUMAB
     Dosage: RIGHT EYE
     Route: 050

REACTIONS (4)
  - Intentional product use issue [Unknown]
  - Drug ineffective [Unknown]
  - Vitreous floaters [Recovered/Resolved]
  - Off label use [Unknown]
